FAERS Safety Report 6737948-9 (Version None)
Quarter: 2010Q2

REPORT INFORMATION
  Report Type: 
  Country: None (occurrence: None)
  Receive Date: 20100524
  Receipt Date: 20100514
  Transmission Date: 20101027
  Serious: Yes (Hospitalization)
  Sender: FDA-Public Use
  Company Number: US-ROCHE-695377

PATIENT
  Age: 61 Year
  Sex: Female
  Weight: 67 kg

DRUGS (1)
  1. BLINDED BEVACIZUMAB [Suspect]
     Indication: GLIOBLASTOMA MULTIFORME
     Dosage: BEGINNING AT WEEK 4, LAST DATERECEIVED ON 4-3-09
     Route: 042
     Dates: start: 20091110, end: 20100304

REACTIONS (4)
  - COGNITIVE DISORDER [None]
  - CONVULSION [None]
  - CYSTITIS [None]
  - HYDROCEPHALUS [None]
